FAERS Safety Report 9248192 (Version 1)
Quarter: 2013Q2

REPORT INFORMATION
  Report Type: Spontaneous
  Country: US (occurrence: None)
  Receive Date: 20130419
  Receipt Date: 20130419
  Transmission Date: 20140414
  Serious: Yes (Hospitalization)
  Sender: FDA-Public Use
  Company Number: None

PATIENT
  Age: 59 Year
  Sex: Male
  Weight: 109.1 kg

DRUGS (2)
  1. OXYCODONE [Suspect]
     Indication: PAIN
     Route: 048
     Dates: start: 20090417
  2. MORPHINE [Suspect]
     Indication: PAIN
     Route: 048
     Dates: start: 20050923

REACTIONS (3)
  - Respiratory failure [None]
  - Somnolence [None]
  - Hypercapnia [None]
